FAERS Safety Report 24779315 (Version 1)
Quarter: 2024Q4

REPORT INFORMATION
  Report Type: Spontaneous
  Country: UY (occurrence: UY)
  Receive Date: 20241226
  Receipt Date: 20241226
  Transmission Date: 20250115
  Serious: No
  Sender: PFIZER
  Company Number: UY-PFIZER INC-202400329617

PATIENT
  Age: 8 Year
  Sex: Male

DRUGS (1)
  1. GENOTROPIN [Suspect]
     Active Substance: SOMATROPIN
     Indication: Prader-Willi syndrome
     Dosage: 1.4 MG, 7 TIMES PER WEEK
     Dates: start: 20220707, end: 20240922

REACTIONS (2)
  - Product administration interrupted [Unknown]
  - Device information output issue [Unknown]

NARRATIVE: CASE EVENT DATE: 20241212
